FAERS Safety Report 17119922 (Version 2)
Quarter: 2019Q4

REPORT INFORMATION
  Report Type: Spontaneous
  Country: CZ (occurrence: CZ)
  Receive Date: 20191206
  Receipt Date: 20191213
  Transmission Date: 20200122
  Serious: Yes (Death, Other)
  Sender: FDA-Public Use
  Company Number: CZ-TEVA-2019-CZ-1147492

PATIENT
  Age: 87 Year
  Sex: Female

DRUGS (11)
  1. METFORMIN [Suspect]
     Active Substance: METFORMIN HYDROCHLORIDE
     Route: 065
     Dates: start: 201909
  2. KALNORMIN [Suspect]
     Active Substance: POTASSIUM CHLORIDE
     Route: 065
  3. FURON [Suspect]
     Active Substance: FUROSEMIDE
     Route: 065
  4. HUMULIN R [Suspect]
     Active Substance: INSULIN HUMAN
     Route: 065
  5. OXANTIL [Suspect]
     Active Substance: ETOFYLLINE\THEOPHYLLINE
     Route: 065
  6. GODASAL [Suspect]
     Active Substance: ASPIRIN\GLYCINE
     Route: 065
  7. LANTUS [Suspect]
     Active Substance: INSULIN GLARGINE
     Route: 065
  8. TRIPLIXAM [Suspect]
     Active Substance: AMLODIPINE BESYLATE\INDAPAMIDE\PERINDOPRIL ARGININE
     Route: 065
  9. AUGMENTIN [Suspect]
     Active Substance: AMOXICILLIN\CLAVULANATE POTASSIUM
     Dosage: PRESCRIBED EITHER IN JULY OR AUGUST
     Route: 065
     Dates: start: 2019
  10. CITALOPRAM [Suspect]
     Active Substance: CITALOPRAM HYDROBROMIDE
     Route: 065
  11. FAMOSAN [Suspect]
     Active Substance: FAMOTIDINE
     Route: 065

REACTIONS (5)
  - Renal failure [Fatal]
  - Diarrhoea [Unknown]
  - Nausea [Unknown]
  - Cardiac failure [Fatal]
  - Vomiting [Unknown]

NARRATIVE: CASE EVENT DATE: 201908
